FAERS Safety Report 7764089-4 (Version None)
Quarter: 2011Q3

REPORT INFORMATION
  Report Type: 
  Country: None (occurrence: None)
  Receive Date: 20110921
  Receipt Date: 20110910
  Transmission Date: 20111222
  Serious: Yes (Other)
  Sender: FDA-Public Use
  Company Number: US-BAYER-2011-084292

PATIENT
  Sex: Female

DRUGS (1)
  1. MIRENA [Suspect]
     Dosage: 20 MCG/24HR, CONT
     Dates: start: 20100201

REACTIONS (9)
  - VAGINAL DISCHARGE [None]
  - DYSMENORRHOEA [None]
  - GENITAL HAEMORRHAGE [None]
  - PREGNANCY WITH CONTRACEPTIVE DEVICE [None]
  - DIZZINESS [None]
  - ABORTION SPONTANEOUS [None]
  - PAIN [None]
  - NAUSEA [None]
  - MENSTRUATION IRREGULAR [None]
